FAERS Safety Report 6565308-2 (Version None)
Quarter: 2010Q1

REPORT INFORMATION
  Report Type: 
  Country: None (occurrence: None)
  Receive Date: 20100201
  Receipt Date: 20100127
  Transmission Date: 20100710
  Serious: Yes (Other)
  Sender: FDA-Public Use
  Company Number: US-ROXANE LABORATORIES, INC.-2010-RO-00104RO

PATIENT
  Age: 76 Year

DRUGS (4)
  1. LIDOCAINE [Suspect]
     Indication: SKIN TEST
     Route: 023
  2. PROCAINE HCL [Suspect]
     Indication: SKIN TEST
     Route: 023
  3. PROCAINE HCL [Suspect]
     Indication: ASPIRATION PLEURAL CAVITY
  4. ALBUTEROL [Concomitant]
     Indication: BRONCHOSPASM

REACTIONS (2)
  - ANGIOEDEMA [None]
  - BRONCHOSPASM [None]
